FAERS Safety Report 24670380 (Version 1)
Quarter: 2024Q4

REPORT INFORMATION
  Report Type: Report from Study
  Country: CA (occurrence: CA)
  Receive Date: 20241127
  Receipt Date: 20241127
  Transmission Date: 20250114
  Serious: Yes (Other)
  Sender: VERITY PHARMACEUTICALS INC.
  Company Number: CA-VER-202400552

PATIENT
  Age: 63 Year
  Sex: Male

DRUGS (3)
  1. TRELSTAR [Suspect]
     Active Substance: TRIPTORELIN PAMOATE
     Indication: Prostate cancer
     Dosage: START DATE: 06-NOV-24??22.5MG IN 6 MONTH,?POWDER FOR PROLONGED-RELEASE SUSPENSION FOR INJECT
     Route: 030
     Dates: end: 20241106
  2. TRELSTAR [Suspect]
     Active Substance: TRIPTORELIN PAMOATE
     Indication: Prostate cancer
     Dosage: START DATE: 08-MAY-24??22.5MG, IN 6 MONTHS?POWDER FOR PROLONGED-RELEASE SUSPENSION FOR INJECT
     Route: 030
     Dates: end: 20240508
  3. UNSPECIFIED INGREDIENT [Concomitant]
     Active Substance: UNSPECIFIED INGREDIENT
     Indication: Product used for unknown indication
     Dosage: RADIATION THERAPY
     Route: 065

REACTIONS (4)
  - Testis cancer [Unknown]
  - Pain [Unknown]
  - Testicular cyst [Not Recovered/Not Resolved]
  - Testicular mass [Not Recovered/Not Resolved]

NARRATIVE: CASE EVENT DATE: 20240101
